FAERS Safety Report 8327089-1 (Version None)
Quarter: 2012Q2

REPORT INFORMATION
  Report Type: 
  Country: None (occurrence: None)
  Receive Date: 20120501
  Receipt Date: 20120423
  Transmission Date: 20120825
  Serious: Yes (Life-Threatening)
  Sender: FDA-Public Use
  Company Number: JP-MERCK-1111USA02573

PATIENT
  Age: 77 Year
  Sex: Female

DRUGS (1)
  1. ZETIA [Suspect]
     Route: 048
     Dates: start: 20091125

REACTIONS (1)
  - PANCYTOPENIA [None]
